FAERS Safety Report 14032930 (Version 2)
Quarter: 2017Q4

REPORT INFORMATION
  Report Type: Spontaneous
  Country: EC (occurrence: EC)
  Receive Date: 20171002
  Receipt Date: 20171027
  Transmission Date: 20180321
  Serious: Yes (Life-Threatening, Other)
  Sender: FDA-Public Use
  Company Number: EC-BAXTER-2017BAX033830

PATIENT
  Age: 33 Year
  Sex: Male
  Weight: 130 kg

DRUGS (1)
  1. SEVOLURANO 250 ML LIQUIDO INHALABLE [Suspect]
     Active Substance: SEVOFLURANE
     Indication: ANAESTHESIA PROCEDURE
     Route: 055
     Dates: start: 20170921

REACTIONS (5)
  - Anxiety [Unknown]
  - Anaesthetic complication [Unknown]
  - Haemorrhage [Recovered/Resolved]
  - Crying [Unknown]
  - Drug ineffective [Unknown]

NARRATIVE: CASE EVENT DATE: 20170921
